FAERS Safety Report 8335069-5 (Version None)
Quarter: 2012Q2

REPORT INFORMATION
  Report Type: 
  Country: None (occurrence: None)
  Receive Date: 20120503
  Receipt Date: 20120305
  Transmission Date: 20120825
  Serious: No
  Sender: FDA-Public Use
  Company Number: US-COVIDIEN/TYCO HEALTHCARE/MALLINCKRODT-T201200823

PATIENT
  Sex: Female
  Weight: 71.655 kg

DRUGS (1)
  1. FENTANYL CITRATE [Suspect]
     Indication: CANCER PAIN
     Dosage: 400 UG, QID
     Route: 048
     Dates: start: 20120220

REACTIONS (2)
  - GLOSSODYNIA [None]
  - DRUG EFFECT DECREASED [None]
